FAERS Safety Report 9886333 (Version 6)
Quarter: 2014Q3

REPORT INFORMATION
  Report Type: Spontaneous
  Country: GB (occurrence: GB)
  Receive Date: 20140210
  Receipt Date: 20140821
  Transmission Date: 20150326
  Serious: Yes (Other)
  Sender: FDA-Public Use
  Company Number: PHFR2013GB007400

PATIENT
  Age: 45 Year
  Sex: Female

DRUGS (17)
  1. CLOZARIL [Suspect]
     Active Substance: CLOZAPINE
     Dosage: 375 MG, QD
     Route: 048
     Dates: start: 201310
  2. CLOZARIL [Suspect]
     Active Substance: CLOZAPINE
     Dosage: 375 MG, QD
     Route: 048
  3. TIOTROPIUM BROMIDE [Concomitant]
     Active Substance: TIOTROPIUM BROMIDE
     Dosage: 1 DF, UNK (30 CAPSULE 1 CAPSULE DAILY)
     Route: 055
  4. PRIADEL [Concomitant]
     Active Substance: LITHIUM CARBONATE
     Indication: BIPOLAR I DISORDER
     Dosage: 800 MG, DAILY
     Route: 048
     Dates: start: 2011
  5. DIAZEPAM. [Concomitant]
     Active Substance: DIAZEPAM
     Indication: BIPOLAR I DISORDER
     Dosage: 2 MG,  (28 TABLET, 1 AT NIGHT)
  6. CLOZARIL [Suspect]
     Active Substance: CLOZAPINE
     Dosage: UKN
     Route: 048
  7. AMISULPRIDE [Concomitant]
     Active Substance: AMISULPRIDE
     Dosage: 100 MG, DAILY
     Route: 048
  8. CLOZARIL [Suspect]
     Active Substance: CLOZAPINE
     Indication: SCHIZOPHRENIA
     Dosage: UKN
     Route: 048
     Dates: start: 20060324
  9. CLOZARIL [Suspect]
     Active Substance: CLOZAPINE
     Dosage: 475 MG, QD
     Route: 048
     Dates: start: 201305
  10. FLUOXETINE [Concomitant]
     Active Substance: FLUOXETINE\FLUOXETINE HYDROCHLORIDE
     Indication: BIPOLAR I DISORDER
     Dosage: 40 MG, DAILY
     Route: 048
     Dates: start: 2011
  11. SIMVASTIN [Concomitant]
     Active Substance: SIMVASTATIN
     Indication: CHEST PAIN
     Dosage: 40 MG, DAILY (28 TABLET, ONE AT NIGHT)
     Route: 048
     Dates: start: 2011
  12. TROSPIUM CHLORIDE. [Concomitant]
     Active Substance: TROSPIUM CHLORIDE
     Dosage: 20 MG, BID (60 TABLET, ONCE  TWICE DAILY)
  13. SOLIFENACIN [Concomitant]
     Active Substance: SOLIFENACIN
     Dosage: 10 MG, DAILY
     Route: 048
     Dates: start: 2011
  14. FLUOXETINE [Concomitant]
     Active Substance: FLUOXETINE\FLUOXETINE HYDROCHLORIDE
     Dosage: 20 MG, BID (58 CAPSULE , 2 DAILY)
  15. PRIADEL [Concomitant]
     Active Substance: LITHIUM CARBONATE
     Dosage: 400 MG, BID (56 TABLETS, 2 NOCTE)
  16. ZOLPIDEM [Concomitant]
     Active Substance: ZOLPIDEM\ZOLPIDEM TARTRATE
     Indication: BIPOLAR I DISORDER
     Dosage: 10 MG, DAILY (28 TABLET, ONE AT NIGHT)
     Route: 048
     Dates: start: 2011
  17. CLOZARIL [Suspect]
     Active Substance: CLOZAPINE
     Dosage: UKN
     Route: 048

REACTIONS (6)
  - International normalised ratio decreased [Unknown]
  - Pulmonary embolism [Recovered/Resolved]
  - Dyspnoea [Unknown]
  - Antipsychotic drug level above therapeutic [Not Recovered/Not Resolved]
  - Chronic obstructive pulmonary disease [Not Recovered/Not Resolved]
  - Schizophrenia [Recovering/Resolving]

NARRATIVE: CASE EVENT DATE: 20120123
